FAERS Safety Report 6991644-1 (Version None)
Quarter: 2010Q3

REPORT INFORMATION
  Report Type: 
  Country: None (occurrence: None)
  Receive Date: 20100915
  Receipt Date: 20100915
  Transmission Date: 20110219
  Serious: Yes (Other)
  Sender: FDA-Public Use
  Company Number: None

PATIENT
  Sex: Male
  Weight: 83.0083 kg

DRUGS (1)
  1. SLIT (SUB-LINGUAL IMMUNOTHERAPY) [Suspect]
     Dosage: 2 GTTS SL DAILY
     Dates: start: 20100816, end: 20100903

REACTIONS (4)
  - BRONCHITIS [None]
  - DYSPNOEA [None]
  - OXYGEN SATURATION DECREASED [None]
  - RESPIRATORY DISORDER [None]
